FAERS Safety Report 8579279-0 (Version None)
Quarter: 2012Q3

REPORT INFORMATION
  Report Type: 
  Country: None (occurrence: None)
  Receive Date: 20120808
  Receipt Date: 20120803
  Transmission Date: 20120928
  Serious: Yes (Hospitalization, Other)
  Sender: FDA-Public Use
  Company Number: US-PFIZER INC-2012020013

PATIENT
  Age: 76 Year
  Sex: Female
  Weight: 76.19 kg

DRUGS (4)
  1. LYRICA [Suspect]
     Indication: FIBROMYALGIA
     Dosage: 75 MG, 1X/DAY
     Route: 048
  2. BENICAR [Concomitant]
     Indication: HYPERTENSION
     Dosage: 40 MG, DAILY
  3. ALDACTONE [Concomitant]
     Indication: HYPERTENSION
     Dosage: 25 MG, DAILY
  4. SYNTHROID [Concomitant]
     Indication: HYPOTHYROIDISM
     Dosage: UNK

REACTIONS (6)
  - BLOOD CHOLESTEROL INCREASED [None]
  - FEELING ABNORMAL [None]
  - MIDDLE INSOMNIA [None]
  - FALL [None]
  - WEIGHT INCREASED [None]
  - ARTERIAL OCCLUSIVE DISEASE [None]
